FAERS Safety Report 5705911-2 (Version None)
Quarter: 2008Q2

REPORT INFORMATION
  Report Type: 
  Country: None (occurrence: None)
  Receive Date: 20080415
  Receipt Date: 20080408
  Transmission Date: 20081010
  Serious: Yes (Other)
  Sender: FDA-Public Use
  Company Number: US-ASTRAZENECA-2008UW07164

PATIENT
  Sex: Female

DRUGS (2)
  1. ARIMIDEX [Suspect]
     Route: 048
     Dates: start: 20080407
  2. CALCIUM [Concomitant]

REACTIONS (2)
  - RECTAL HAEMORRHAGE [None]
  - VAGINAL HAEMORRHAGE [None]
